FAERS Safety Report 9699144 (Version 1)
Quarter: 2013Q4

REPORT INFORMATION
  Report Type: Spontaneous
  Country: US (occurrence: US)
  Receive Date: 20131120
  Receipt Date: 20131120
  Transmission Date: 20140711
  Serious: No
  Sender: FDA-Public Use
  Company Number: US-GILEAD-2007-0014666

PATIENT
  Sex: Male
  Weight: 127.1 kg

DRUGS (6)
  1. LETAIRIS [Suspect]
     Indication: PULMONARY ARTERIAL HYPERTENSION
     Route: 048
  2. ATENOLOL [Concomitant]
     Route: 048
  3. DILTIAZEM ER [Concomitant]
     Route: 048
  4. LASIX [Concomitant]
     Route: 048
  5. POTASSIUM CL [Concomitant]
     Route: 048
  6. COUMADIN [Concomitant]
     Route: 048

REACTIONS (1)
  - Local swelling [None]
